FAERS Safety Report 18631793 (Version 1)
Quarter: 2020Q4

REPORT INFORMATION
  Report Type: Spontaneous
  Country: GB (occurrence: GB)
  Receive Date: 20201218
  Receipt Date: 20201218
  Transmission Date: 20210114
  Serious: Yes (Hospitalization)
  Sender: FDA-Public Use
  Company Number: GB-CHEPLA-C20203921

PATIENT
  Age: 22 Year
  Sex: Female
  Weight: 127 kg

DRUGS (9)
  1. ORLISTAT. [Suspect]
     Active Substance: ORLISTAT
     Indication: OBESITY
     Dosage: UP TO THREE TIMES A DAY
     Dates: start: 20200907, end: 20201124
  2. VENLAFAXINE HYDROCHLORIDE. [Concomitant]
     Active Substance: VENLAFAXINE HYDROCHLORIDE
  3. FOLIC ACID. [Concomitant]
     Active Substance: FOLIC ACID
  4. LEVETIRACETAM ACCORD [Concomitant]
     Active Substance: LEVETIRACETAM
  5. TOPIRAMATE. [Concomitant]
     Active Substance: TOPIRAMATE
  6. COLECALCIFEROL [Concomitant]
     Active Substance: CHOLECALCIFEROL
  7. GENERICS UK LANSOPRAZOLE [Concomitant]
     Active Substance: LANSOPRAZOLE
  8. LYMECYCLINE [Concomitant]
     Active Substance: LYMECYCLINE
  9. ADAPALENE. [Concomitant]
     Active Substance: ADAPALENE

REACTIONS (2)
  - Diarrhoea [Recovering/Resolving]
  - Seizure [Recovering/Resolving]

NARRATIVE: CASE EVENT DATE: 20201026
